FAERS Safety Report 5127412-5 (Version None)
Quarter: 2006Q4

REPORT INFORMATION
  Report Type: 
  Country: None (occurrence: None)
  Receive Date: 20061013
  Receipt Date: 20061013
  Transmission Date: 20070319
  Serious: Yes (Hospitalization)
  Sender: FDA-Public Use
  Company Number: None

PATIENT
  Age: 74 Year
  Sex: Male
  Weight: 70.7611 kg

DRUGS (1)
  1. LISINOPRIL [Suspect]
     Indication: RENAL FAILURE
     Dosage: EVERY MORNING
     Dates: start: 20060727, end: 20060806

REACTIONS (3)
  - ANGIONEUROTIC OEDEMA [None]
  - HYPERKALAEMIA [None]
  - RENAL FAILURE [None]
